FAERS Safety Report 14488154 (Version 1)
Quarter: 2018Q1

REPORT INFORMATION
  Report Type: Report from Study
  Country: US (occurrence: BR)
  Receive Date: 20180205
  Receipt Date: 20180205
  Transmission Date: 20180509
  Serious: Yes (Death, Hospitalization, Other)
  Sender: FDA-Public Use
  Company Number: US-SUNOVION-2018SUN000328

PATIENT
  Sex: Male
  Weight: 47 kg

DRUGS (2)
  1. INDACATEROL AND GLYCOPYRROLATE [Suspect]
     Active Substance: GLYCOPYRROLATE\INDACATEROL MALEATE
     Indication: EMPHYSEMA
     Dosage: 1 DF (GLYCOPYRRONIUM BROMIDE 50 UG/ INDACATEROL 110 UG), QD; INHALATION
     Route: 055
     Dates: start: 201712
  2. PREDSON [Suspect]
     Active Substance: PREDNISONE
     Indication: PRODUCT USED FOR UNKNOWN INDICATION
     Dosage: UNK
     Route: 065
     Dates: start: 201712

REACTIONS (11)
  - Cardiac failure [Fatal]
  - Chest pain [Fatal]
  - Lung infection [Fatal]
  - Multiple organ dysfunction syndrome [Fatal]
  - Generalised erythema [Unknown]
  - Hypoxia [Fatal]
  - Asthenia [Unknown]
  - Pneumonia [Fatal]
  - Secondary immunodeficiency [Unknown]
  - Respiratory failure [Fatal]
  - Wound [Unknown]
